FAERS Safety Report 7911743-7 (Version None)
Quarter: 2011Q4

REPORT INFORMATION
  Report Type: 
  Country: None (occurrence: None)
  Receive Date: 20111114
  Receipt Date: 20111114
  Transmission Date: 20120403
  Serious: No
  Sender: FDA-Public Use
  Company Number: None

PATIENT
  Age: 65 Year
  Sex: Male

DRUGS (1)
  1. WARFARIN SODIUM [Suspect]
     Dosage: 5MG
     Route: 048
     Dates: start: 20110519, end: 20110531

REACTIONS (2)
  - INTERNATIONAL NORMALISED RATIO DECREASED [None]
  - PRODUCT SUBSTITUTION ISSUE [None]
